FAERS Safety Report 9294277 (Version 1)
Quarter: 2013Q2

REPORT INFORMATION
  Report Type: Spontaneous
  Country: US (occurrence: US)
  Receive Date: 20130516
  Receipt Date: 20130516
  Transmission Date: 20140414
  Serious: No
  Sender: FDA-Public Use
  Company Number: US-BANPHARM-20130845

PATIENT
  Sex: Male

DRUGS (1)
  1. IBUPROFEN CAPSULES 200 MG [Suspect]
     Indication: PAIN IN EXTREMITY
     Dosage: 2 DF, QD,
     Route: 048

REACTIONS (2)
  - Gait disturbance [Recovered/Resolved]
  - Drug ineffective [Unknown]
